FAERS Safety Report 5163150-0 (Version None)
Quarter: 2006Q4

REPORT INFORMATION
  Report Type: 
  Country: None (occurrence: None)
  Receive Date: 20061204
  Receipt Date: 20061121
  Transmission Date: 20070319
  Serious: Yes (Other)
  Sender: FDA-Public Use
  Company Number: LB-JNJFOC-20061104643

PATIENT
  Age: 80 Year
  Sex: Male

DRUGS (13)
  1. LEVOFLOXACIN [Suspect]
     Dosage: 250MG ONCE
     Route: 042
  2. LEVOFLOXACIN [Suspect]
     Indication: PNEUMONIA
     Dosage: 500MG ONCE
     Route: 042
  3. ACENOCOUMAROL [Concomitant]
     Indication: AORTIC VALVE REPLACEMENT
     Route: 048
  4. CONCOR [Concomitant]
     Indication: CARDIAC DISORDER
     Route: 048
  5. SPIRONOLACTONE [Concomitant]
     Indication: CARDIAC DISORDER
     Route: 048
  6. BURINEX [Concomitant]
     Indication: CARDIAC DISORDER
     Route: 048
  7. OMEPRAZOLE [Concomitant]
     Indication: PROPHYLAXIS AGAINST GASTROINTESTINAL ULCER
     Dosage: 20 (ONE) EVERYDAY
     Route: 048
  8. LORAZEPAM [Concomitant]
     Indication: INSOMNIA
     Route: 048
  9. DAKTARIN GEL [Concomitant]
     Indication: MOUTH ULCERATION
     Route: 048
  10. PULMICORT [Concomitant]
     Indication: BRONCHOSPASM
     Route: 055
  11. AMIODARONE HCL [Concomitant]
     Indication: ARRHYTHMIA
     Route: 048
  12. VENTOLIN [Concomitant]
     Route: 065
  13. ATROVENT [Concomitant]
     Route: 065

REACTIONS (1)
  - DIVERTICULITIS [None]
